FAERS Safety Report 17379276 (Version 1)
Quarter: 2020Q1

REPORT INFORMATION
  Report Type: Spontaneous
  Country: US (occurrence: US)
  Receive Date: 20200206
  Receipt Date: 20200206
  Transmission Date: 20200409
  Serious: No
  Sender: FDA-Public Use
  Company Number: US-ABBVIE-19K-163-2673860-00

PATIENT

DRUGS (7)
  1. AROVAN (VALSARTAN) [Suspect]
     Active Substance: VALSARTAN
     Indication: RHEUMATOID ARTHRITIS
     Route: 065
  2. ENBREL [Suspect]
     Active Substance: ETANERCEPT
     Indication: RHEUMATOID ARTHRITIS
     Route: 065
  3. METHOTREXATE. [Suspect]
     Active Substance: METHOTREXATE
     Indication: RHEUMATOID ARTHRITIS
     Route: 065
     Dates: start: 201201, end: 201206
  4. ACTEMRA [Concomitant]
     Active Substance: TOCILIZUMAB
     Indication: PRODUCT USED FOR UNKNOWN INDICATION
  5. HUMIRA [Suspect]
     Active Substance: ADALIMUMAB
     Indication: RHEUMATOID ARTHRITIS
     Route: 058
  6. PREDNISONE. [Concomitant]
     Active Substance: PREDNISONE
     Indication: PRODUCT USED FOR UNKNOWN INDICATION
  7. SIMPONI [Suspect]
     Active Substance: GOLIMUMAB
     Indication: RHEUMATOID ARTHRITIS
     Route: 065

REACTIONS (3)
  - Nausea [Unknown]
  - Injection site reaction [Unknown]
  - Drug ineffective [Unknown]
